FAERS Safety Report 23628724 (Version 2)
Quarter: 2024Q2

REPORT INFORMATION
  Report Type: Spontaneous
  Country: US (occurrence: US)
  Receive Date: 20240313
  Receipt Date: 20240405
  Transmission Date: 20240716
  Serious: Yes (Other)
  Sender: FDA-Public Use
  Company Number: US-MEDEXUS PHARMA, INC.-2024MED00120

PATIENT
  Age: 77 Year
  Sex: Female

DRUGS (16)
  1. RASUVO [Suspect]
     Active Substance: METHOTREXATE SODIUM
     Indication: Uveitis
     Dosage: 25 MG, 1X/WEEK ON WEDNESDAYS, RIGHT ABOVE THE KNEE ON THE FATTY PART
  2. CREON [Concomitant]
     Active Substance: PANCRELIPASE AMYLASE\PANCRELIPASE LIPASE\PANCRELIPASE PROTEASE
  3. ROSUVASTATIN [Concomitant]
     Active Substance: ROSUVASTATIN
  4. ZETIA [Concomitant]
     Active Substance: EZETIMIBE
  5. ASPIRIN [Concomitant]
     Active Substance: ASPIRIN
  6. HYDROCODONE [Concomitant]
     Active Substance: HYDROCODONE
  7. DILTIAZEM [Concomitant]
     Active Substance: DILTIAZEM
  8. VITAMIN C [Concomitant]
     Active Substance: ASCORBIC ACID
  9. VITAMIN D NOS [Concomitant]
     Active Substance: VITAMIN D NOS
  10. PREDNISONE [Concomitant]
     Active Substance: PREDNISONE
     Dosage: 5 MG EVERY MORNING
     Route: 048
  11. HUMULIN NOS [Concomitant]
     Active Substance: INSULIN HUMAN
     Dosage: 14 ^ML,^ 1X/DAY
  12. HUMALOG [Concomitant]
     Active Substance: INSULIN LISPRO
     Dosage: SLIDING SCALE
  13. TIMOLOL [Concomitant]
     Active Substance: TIMOLOL
  14. BRIMONIDINE [Concomitant]
     Active Substance: BRIMONIDINE TARTRATE
  15. PREDNISOLONE [Concomitant]
     Active Substance: PREDNISOLONE
  16. LATANOPROST [Concomitant]
     Active Substance: LATANOPROST

REACTIONS (2)
  - Transient ischaemic attack [Recovered/Resolved]
  - Off label use [Not Recovered/Not Resolved]

NARRATIVE: CASE EVENT DATE: 20221129
